FAERS Safety Report 22216730 (Version 1)
Quarter: 2023Q2

REPORT INFORMATION
  Report Type: Other
  Country: US (occurrence: None)
  Receive Date: 20230417
  Receipt Date: 20230417
  Transmission Date: 20230722
  Serious: Yes (Other)
  Sender: FDA-Public Use
  Company Number: US-ROCHE-3329110

PATIENT
  Age: 73 Year
  Sex: Female

DRUGS (2)
  1. AVASTIN [Suspect]
     Active Substance: BEVACIZUMAB
     Indication: Brain neoplasm malignant
     Dosage: INFUSE 579MG INTRAVENOUSLY ONCE EVERY 14 DAY(S)
     Route: 042
  2. AVASTIN [Suspect]
     Active Substance: BEVACIZUMAB
     Indication: Neoplasm
     Dosage: INFUSE 579MG INTRAVENOUSLY ONCE EVERY 14 DAY(S)
     Route: 042

REACTIONS (1)
  - Seizure [Unknown]
